FAERS Safety Report 9444016 (Version 5)
Quarter: 2014Q2

REPORT INFORMATION
  Report Type: Report from Study
  Country: BR (occurrence: BR)
  Receive Date: 20130807
  Receipt Date: 20140529
  Transmission Date: 20141212
  Serious: Yes (Hospitalization, Other)
  Sender: FDA-Public Use
  Company Number: BR-ROCHE-1258168

PATIENT
  Sex: Female
  Weight: 56 kg

DRUGS (5)
  1. MABTHERA [Suspect]
     Indication: RHEUMATOID ARTHRITIS
     Dosage: MOST RECENT INFUSION ON 23/OCT/2013
     Route: 065
     Dates: start: 20090401
  2. PRELONE [Suspect]
     Indication: RHEUMATOID ARTHRITIS
     Route: 065
     Dates: start: 2008
  3. BRILINTA [Suspect]
     Indication: PRODUCT USED FOR UNKNOWN INDICATION
     Route: 065
  4. OMEPRAZOLE [Concomitant]
     Dosage: IN MORNING
     Route: 065
  5. SERETIDE [Concomitant]
     Indication: PULMONARY FIBROSIS

REACTIONS (15)
  - Venous occlusion [Recovering/Resolving]
  - Myocardial infarction [Recovered/Resolved]
  - Rheumatoid arthritis [Recovered/Resolved]
  - Ocular hyperaemia [Not Recovered/Not Resolved]
  - Eye swelling [Not Recovered/Not Resolved]
  - Discomfort [Recovered/Resolved]
  - Impaired healing [Recovering/Resolving]
  - Fall [Unknown]
  - Haematoma [Not Recovered/Not Resolved]
  - Haemorrhage [Not Recovered/Not Resolved]
  - Therapeutic response delayed [Unknown]
  - Wound infection [Recovering/Resolving]
  - Influenza [Not Recovered/Not Resolved]
  - Pain [Recovered/Resolved]
  - Malaise [Recovered/Resolved]
